FAERS Safety Report 17912742 (Version 1)
Quarter: 2020Q2

REPORT INFORMATION
  Report Type: Spontaneous
  Country: US (occurrence: US)
  Receive Date: 20200618
  Receipt Date: 20200618
  Transmission Date: 20200714
  Serious: No
  Sender: FDA-Public Use
  Company Number: US-CELGENEUS-USA-20200508894

PATIENT
  Sex: Female
  Weight: 55.39 kg

DRUGS (2)
  1. REVLIMID [Suspect]
     Active Substance: LENALIDOMIDE
     Indication: PLASMA CELL MYELOMA
     Dosage: 25 MILLIGRAM
     Route: 048
     Dates: start: 202004
  2. REVLIMID [Suspect]
     Active Substance: LENALIDOMIDE
     Dosage: 25 MILLIGRAM
     Route: 048
     Dates: start: 20200511

REACTIONS (9)
  - Pain in extremity [Not Recovered/Not Resolved]
  - Nausea [Recovered/Resolved with Sequelae]
  - Abdominal pain [Not Recovered/Not Resolved]
  - Vomiting [Recovered/Resolved with Sequelae]
  - Back pain [Not Recovered/Not Resolved]
  - Chapped lips [Recovered/Resolved with Sequelae]
  - Constipation [Not Recovered/Not Resolved]
  - Feeding disorder [Recovered/Resolved with Sequelae]
  - Hypoaesthesia [Recovered/Resolved with Sequelae]

NARRATIVE: CASE EVENT DATE: 2020
